FAERS Safety Report 22028626 (Version 1)
Quarter: 2023Q1

REPORT INFORMATION
  Report Type: Spontaneous
  Country: FR (occurrence: FR)
  Receive Date: 20230223
  Receipt Date: 20230223
  Transmission Date: 20230417
  Serious: Yes (Hospitalization)
  Sender: FDA-Public Use
  Company Number: None

PATIENT
  Age: 45 Year
  Sex: Female
  Weight: 43 kg

DRUGS (2)
  1. LANSOPRAZOLE [Suspect]
     Active Substance: LANSOPRAZOLE
     Indication: Duodenogastric reflux
     Dosage: 15 MILLIGRAM, QD,(1/2 TABLET IN THE EVENING)
     Route: 048
     Dates: start: 20180225, end: 20180225
  2. TRELEGY ELLIPTA [Concomitant]
     Active Substance: FLUTICASONE FUROATE\UMECLIDINIUM BROMIDE\VILANTEROL TRIFENATATE
     Dosage: UNK,92 MICROGRAMS/55 MICROGRAMS/22 MICROGRAMS
     Route: 065

REACTIONS (3)
  - Abdominal pain [Recovered/Resolved]
  - Angioedema [Recovered/Resolved]
  - Diarrhoea [Recovered/Resolved]

NARRATIVE: CASE EVENT DATE: 20180225
